FAERS Safety Report 10198951 (Version 1)
Quarter: 2014Q2

REPORT INFORMATION
  Report Type: Spontaneous
  Country: US (occurrence: US)
  Receive Date: 20140527
  Receipt Date: 20140527
  Transmission Date: 20141212
  Serious: Yes (Death, Other)
  Sender: FDA-Public Use
  Company Number: PHHY2014US063340

PATIENT
  Sex: 0

DRUGS (3)
  1. CICLOSPORIN [Suspect]
  2. DEXAMETHASONE [Suspect]
  3. ETOPOSIDE [Suspect]

REACTIONS (6)
  - Death [Fatal]
  - Respiratory failure [Unknown]
  - Hepatic failure [Unknown]
  - Coagulopathy [Unknown]
  - Fungaemia [Unknown]
  - General physical health deterioration [Unknown]
